FAERS Safety Report 7818095-1 (Version None)
Quarter: 2011Q4

REPORT INFORMATION
  Report Type: 
  Country: None (occurrence: None)
  Receive Date: 20111017
  Receipt Date: 20111011
  Transmission Date: 20120403
  Serious: Yes (Other)
  Sender: FDA-Public Use
  Company Number: BR-ROCHE-1003733

PATIENT
  Sex: Female
  Weight: 63 kg

DRUGS (14)
  1. ACTEMRA [Suspect]
     Route: 042
     Dates: start: 20110501
  2. ACTEMRA [Suspect]
     Route: 042
     Dates: start: 20110601
  3. METHOTREXATE [Concomitant]
  4. ACTEMRA [Suspect]
     Route: 042
     Dates: start: 20101201
  5. METICORTEN [Concomitant]
  6. ACTEMRA [Suspect]
     Route: 042
     Dates: start: 20110901
  7. ACTEMRA [Suspect]
     Route: 042
     Dates: start: 20111001
  8. CORTICORTEN [Concomitant]
  9. ACTEMRA [Suspect]
     Route: 042
     Dates: start: 20110204
  10. ACTEMRA [Suspect]
     Route: 042
     Dates: start: 20110701
  11. ACTEMRA [Suspect]
     Route: 042
     Dates: start: 20110801
  12. ACTEMRA [Suspect]
     Indication: PRODUCT USED FOR UNKNOWN INDICATION
     Route: 042
     Dates: start: 20101101
  13. ACTEMRA [Suspect]
     Route: 042
     Dates: start: 20110301
  14. ACTEMRA [Suspect]
     Route: 042
     Dates: start: 20110404

REACTIONS (2)
  - CORONARY ARTERY OCCLUSION [None]
  - BLOOD CHOLESTEROL INCREASED [None]
